FAERS Safety Report 4446436-4 (Version None)
Quarter: 2004Q3

REPORT INFORMATION
  Report Type: 
  Country: None (occurrence: None)
  Receive Date: 20040907
  Receipt Date: 20040825
  Transmission Date: 20050211
  Serious: Yes (Other)
  Sender: FDA-Public Use
  Company Number: 2004059938

PATIENT
  Age: 23 Year

DRUGS (1)
  1. CEREBYX [Suspect]
     Indication: ILL-DEFINED DISORDER

REACTIONS (2)
  - ARRHYTHMIA [None]
  - HYPOCALCAEMIA [None]
